FAERS Safety Report 5170375-7 (Version None)
Quarter: 2006Q4

REPORT INFORMATION
  Report Type: 
  Country: None (occurrence: None)
  Receive Date: 20061204
  Receipt Date: 20061127
  Transmission Date: 20070319
  Serious: Yes (Other)
  Sender: FDA-Public Use
  Company Number: 2006124139

PATIENT
  Age: 60 Year
  Sex: Male
  Weight: 68 kg

DRUGS (1)
  1. VIAGRA [Suspect]
     Indication: ERECTILE DYSFUNCTION
     Dosage: 100 MG, AS  NECESSARY, ORAL
     Route: 048
     Dates: start: 19980101, end: 20030220

REACTIONS (1)
  - ARRHYTHMIA [None]
